FAERS Safety Report 20557175 (Version 1)
Quarter: 2022Q1

REPORT INFORMATION
  Report Type: Spontaneous
  Country: US (occurrence: US)
  Receive Date: 20220307
  Receipt Date: 20220307
  Transmission Date: 20220423
  Serious: Yes (Other)
  Sender: FDA-Public Use
  Company Number: US-PFIZER INC-202200283526

PATIENT
  Age: 57 Year
  Sex: Female

DRUGS (2)
  1. ESTRING [Suspect]
     Active Substance: ESTRADIOL
     Dosage: UNK
     Route: 067
  2. ESTRING [Suspect]
     Active Substance: ESTRADIOL
     Dosage: 2 MG (2MG RING)
     Dates: start: 202109

REACTIONS (1)
  - Vaginal infection [Unknown]
